FAERS Safety Report 9020593 (Version 1)
Quarter: 2013Q1

REPORT INFORMATION
  Report Type: Spontaneous
  Country: US (occurrence: US)
  Receive Date: 20130119
  Receipt Date: 20130119
  Transmission Date: 20140127
  Serious: No
  Sender: FDA-Public Use
  Company Number: US-ALLERGAN-1207168US

PATIENT
  Age: 52 Year
  Sex: Female

DRUGS (2)
  1. BOTOX COSMETIC [Suspect]
     Indication: SKIN WRINKLING
     Dosage: UNK
     Route: 030
     Dates: start: 2011, end: 2011
  2. IBUPROFEN [Concomitant]
     Indication: PAIN

REACTIONS (3)
  - Periorbital contusion [Unknown]
  - Contusion [Unknown]
  - Contusion [Unknown]
